FAERS Safety Report 9648063 (Version 3)
Quarter: 2013Q4

REPORT INFORMATION
  Report Type: Spontaneous
  Country: AU (occurrence: AU)
  Receive Date: 20131028
  Receipt Date: 20131219
  Transmission Date: 20140711
  Serious: Yes (Other)
  Sender: FDA-Public Use
  Company Number: AU-MERCK-1310AUS011563

PATIENT
  Sex: Male

DRUGS (1)
  1. SAPHRIS [Suspect]
     Indication: SCHIZOPHRENIA
     Dosage: 20 MG/DAY FOR 6 MONTHS
     Route: 060
     Dates: start: 201304

REACTIONS (3)
  - Psychotic disorder [Unknown]
  - Agitation [Unknown]
  - Anxiety [Unknown]
